FAERS Safety Report 5803867-5 (Version None)
Quarter: 2008Q3

REPORT INFORMATION
  Report Type: 
  Country: None (occurrence: None)
  Receive Date: 20080707
  Receipt Date: 20080619
  Transmission Date: 20090109
  Serious: Yes (Other)
  Sender: FDA-Public Use
  Company Number: 2008S1011144

PATIENT
  Age: 16 Year
  Sex: Female

DRUGS (3)
  1. WARFARIN SODIUM [Suspect]
     Dosage: 160 MG; ONCE ORAL
     Route: 048
  2. DIGOXIN [Suspect]
     Dosage: 5 MG; X1 ORAL
     Route: 048
  3. PROPAFENONE HCL [Suspect]
     Dosage: 4.5 GM; X1 ORAL
     Route: 048

REACTIONS (3)
  - HYPOTENSION [None]
  - MULTIPLE DRUG OVERDOSE INTENTIONAL [None]
  - SINUS BRADYCARDIA [None]
